FAERS Safety Report 9349866 (Version 1)
Quarter: 2013Q2

REPORT INFORMATION
  Report Type: Spontaneous
  Country: US (occurrence: None)
  Receive Date: 20130611
  Receipt Date: 20130611
  Transmission Date: 20140414
  Serious: No
  Sender: FDA-Public Use
  Company Number: ADR-2013-00964

PATIENT
  Age: 16 Year
  Sex: Female

DRUGS (1)
  1. BACLOFEN INTRATHECAL [Suspect]
     Indication: MUSCLE SPASTICITY

REACTIONS (11)
  - Drug withdrawal syndrome [None]
  - Product substitution issue [None]
  - Hyperhidrosis [None]
  - Muscle spasticity [None]
  - Heart rate increased [None]
  - Musculoskeletal stiffness [None]
  - Renal failure [None]
  - Infrequent bowel movements [None]
  - Urine output decreased [None]
  - Convulsion [None]
  - Gastric disorder [None]
